FAERS Safety Report 7602306-1 (Version None)
Quarter: 2011Q3

REPORT INFORMATION
  Report Type: 
  Country: None (occurrence: None)
  Receive Date: 20110711
  Receipt Date: 20110627
  Transmission Date: 20111222
  Serious: Yes (Other)
  Sender: FDA-Public Use
  Company Number: GB-MYLANLABS-2011S1011717

PATIENT
  Age: 15 Year
  Sex: Male

DRUGS (2)
  1. CITALOPRAM [Suspect]
     Indication: DEPRESSION
  2. CITALOPRAM [Suspect]
     Indication: OBSESSIVE-COMPULSIVE DISORDER

REACTIONS (6)
  - IMPULSIVE BEHAVIOUR [None]
  - SLEEP DISORDER [None]
  - BIPOLAR DISORDER [None]
  - RESTLESSNESS [None]
  - DISINHIBITION [None]
  - IRRITABILITY [None]
